FAERS Safety Report 8803622 (Version 1)
Quarter: 2012Q4

REPORT INFORMATION
  Report Type: 
  Country: JP (occurrence: JP)
  Receive Date: 20120924
  Receipt Date: 20120924
  Transmission Date: 20130627
  Serious: Yes (Hospitalization)
  Sender: FDA-Public Use
  Company Number: JP-AMGEN-JPNSP2012048396

PATIENT
  Age: 34 Year
  Sex: Female

DRUGS (6)
  1. ENBREL [Suspect]
     Indication: RHEUMATOID ARTHRITIS
     Dosage: 25 mg, qwk
     Route: 058
     Dates: start: 20100510, end: 20120710
  2. REBAMIPIDE [Concomitant]
     Indication: GASTROINTESTINAL DISORDER
     Dosage: 100 mg, 3x/day
     Route: 048
  3. RHEUMATREX                         /00113801/ [Concomitant]
     Indication: RHEUMATOID ARTHRITIS
     Dosage: 8 mg/week  in 3 divided doses (4 mg, 2 mg, 2 mg)
     Route: 048
     Dates: start: 200505
  4. PREDNISOLONE [Concomitant]
     Indication: RHEUMATOID ARTHRITIS
     Dosage: 3 mg, qd
     Route: 048
     Dates: start: 200505
  5. ALFAROL [Concomitant]
     Indication: OSTEOPOROSIS
     Dosage: 0.5 ug, 1x/day
     Route: 048
  6. FOLIAMIN [Concomitant]
     Indication: PROPHYLAXIS
     Dosage: 5 mg, weekly
     Route: 048

REACTIONS (1)
  - Vasculitis necrotising [Recovered/Resolved]
